FAERS Safety Report 10905420 (Version 1)
Quarter: 2015Q1

REPORT INFORMATION
  Report Type: Spontaneous
  Country: US (occurrence: None)
  Receive Date: 20150309
  Receipt Date: 20150309
  Transmission Date: 20150721
  Serious: Yes (Other)
  Sender: FDA-Public Use
  Company Number: None

PATIENT
  Age: 47 Year
  Sex: Female
  Weight: 119.3 kg

DRUGS (3)
  1. ADVAIR DISKUS [Suspect]
     Active Substance: FLUTICASONE PROPIONATE\SALMETEROL XINAFOATE
     Indication: PULMONARY SARCOIDOSIS
     Dosage: 1 PUFF TWICE DAILY TAKEN BY MOUTH
     Route: 048
     Dates: start: 20131015, end: 20150301
  2. VENTOLIN HFA [Concomitant]
     Active Substance: ALBUTEROL SULFATE
  3. PRENATAL VITAMINS [Concomitant]
     Active Substance: VITAMINS

REACTIONS (5)
  - Tongue disorder [None]
  - Mass [None]
  - Swollen tongue [None]
  - Tongue ulceration [None]
  - Glossodynia [None]

NARRATIVE: CASE EVENT DATE: 20150301
